FAERS Safety Report 15240848 (Version 1)
Quarter: 2018Q3

REPORT INFORMATION
  Report Type: Spontaneous
  Country: US (occurrence: US)
  Receive Date: 20180711
  Receipt Date: 20180711
  Transmission Date: 20181010
  Serious: Yes (Life-Threatening, Hospitalization, Disabling, Other)
  Sender: FDA-Public Use
  Company Number: None

PATIENT
  Age: 33 Year
  Sex: Male
  Weight: 94.5 kg

DRUGS (7)
  1. CYMBALTA [Concomitant]
     Active Substance: DULOXETINE HYDROCHLORIDE
  2. PRILOSEC [Concomitant]
     Active Substance: OMEPRAZOLE MAGNESIUM
  3. GABAPENTIN. [Suspect]
     Active Substance: GABAPENTIN
     Indication: PAIN
     Dosage: ?          QUANTITY:1 CAPSULE(S);?
     Route: 048
     Dates: start: 20171004, end: 20171006
  4. NAPROXEN. [Concomitant]
     Active Substance: NAPROXEN
  5. MOBIC [Concomitant]
     Active Substance: MELOXICAM
  6. GABAPENTIN. [Suspect]
     Active Substance: GABAPENTIN
     Indication: INGUINAL HERNIA
     Dosage: ?          QUANTITY:1 CAPSULE(S);?
     Route: 048
     Dates: start: 20171004, end: 20171006
  7. TENS UNIT [Concomitant]

REACTIONS (8)
  - Suicidal ideation [None]
  - Paresis [None]
  - Monoplegia [None]
  - Speech disorder [None]
  - Walking aid user [None]
  - Amnesia [None]
  - Cerebrovascular accident [None]
  - Fine motor skill dysfunction [None]

NARRATIVE: CASE EVENT DATE: 20171004
